FAERS Safety Report 9633036 (Version 2)
Quarter: 2013Q4

REPORT INFORMATION
  Report Type: Spontaneous
  Country: PL (occurrence: PL)
  Receive Date: 20131018
  Receipt Date: 20131018
  Transmission Date: 20140711
  Serious: Yes (Death, Other)
  Sender: FDA-Public Use
  Company Number: PL-BAXTER-2013BAX030171

PATIENT
  Age: 56 Year
  Sex: Male

DRUGS (6)
  1. ENDOXAN [Suspect]
     Indication: NON-HODGKIN^S LYMPHOMA
     Route: 065
  2. CYTARABINE [Suspect]
     Indication: NON-HODGKIN^S LYMPHOMA
     Route: 065
  3. VINCRISTINE [Suspect]
     Indication: NON-HODGKIN^S LYMPHOMA
     Route: 065
  4. DOXORUBICINE [Suspect]
     Indication: NON-HODGKIN^S LYMPHOMA
     Route: 065
  5. DEXAMETHASONE [Suspect]
     Indication: NON-HODGKIN^S LYMPHOMA
     Route: 065
  6. METHOTREXATE [Suspect]
     Indication: NON-HODGKIN^S LYMPHOMA
     Route: 065

REACTIONS (3)
  - Non-Hodgkin^s lymphoma [Fatal]
  - Headache [Unknown]
  - VIIth nerve paralysis [Unknown]
